FAERS Safety Report 25852964 (Version 2)
Quarter: 2025Q4

REPORT INFORMATION
  Report Type: Spontaneous
  Country: CN (occurrence: CN)
  Receive Date: 20250926
  Receipt Date: 20251001
  Transmission Date: 20260118
  Serious: Yes (Other)
  Sender: PFIZER
  Company Number: CN-PFIZER INC-PV202500114163

PATIENT
  Age: 27 Year
  Sex: Male

DRUGS (1)
  1. XYNTHA [Suspect]
     Active Substance: MOROCTOCOG ALFA
     Dosage: 2000 IU, 1X/DAY
     Route: 040

REACTIONS (5)
  - Epistaxis [Unknown]
  - Haemorrhage subcutaneous [Unknown]
  - Joint swelling [Unknown]
  - Arthralgia [Unknown]
  - Mobility decreased [Unknown]
